FAERS Safety Report 11036716 (Version 1)
Quarter: 2015Q2

REPORT INFORMATION
  Report Type: Spontaneous
  Country: CN (occurrence: CN)
  Receive Date: 20150416
  Receipt Date: 20150416
  Transmission Date: 20150821
  Serious: Yes (Hospitalization)
  Sender: FDA-Public Use
  Company Number: CN-JNJFOC-20150404839

PATIENT
  Age: 20 Year
  Sex: Female
  Weight: 62 kg

DRUGS (1)
  1. TYLENOL [Suspect]
     Active Substance: ACETAMINOPHEN
     Indication: PYREXIA
     Route: 048
     Dates: start: 20141127, end: 20141130

REACTIONS (3)
  - Drug ineffective [Unknown]
  - Rash [Recovered/Resolved]
  - Hepatocellular injury [Recovering/Resolving]

NARRATIVE: CASE EVENT DATE: 20141130
